FAERS Safety Report 5680479-8 (Version None)
Quarter: 2008Q1

REPORT INFORMATION
  Report Type: 
  Country: None (occurrence: None)
  Receive Date: 20080326
  Receipt Date: 20080319
  Transmission Date: 20080703
  Serious: Yes (Hospitalization)
  Sender: FDA-Public Use
  Company Number: B0513928A

PATIENT
  Age: 4 Year
  Sex: Female

DRUGS (1)
  1. AUGMENTIN '125' [Suspect]
     Indication: CHRONIC TONSILLITIS
     Dosage: 5ML THREE TIMES PER DAY
     Route: 048
     Dates: start: 20080212, end: 20080214

REACTIONS (2)
  - ERYTHEMA [None]
  - URTICARIA [None]
